FAERS Safety Report 8239887-3 (Version None)
Quarter: 2012Q1

REPORT INFORMATION
  Report Type: 
  Country: None (occurrence: None)
  Receive Date: 20120328
  Receipt Date: 20120323
  Transmission Date: 20120608
  Serious: Yes (Other)
  Sender: FDA-Public Use
  Company Number: PHHY2012MX026075

PATIENT
  Sex: Female

DRUGS (4)
  1. TIBOLONE [Concomitant]
     Indication: INTRAOCULAR PRESSURE TEST ABNORMAL
     Dosage: 1 TABLET DAILY
     Dates: start: 20110301
  2. DAFLON (DIOSMIN/HESPERIDIN) [Concomitant]
     Dosage: UNK UKN, UNK
  3. XALATAN [Concomitant]
     Indication: INTRAOCULAR PRESSURE TEST ABNORMAL
     Dosage: 1 DROP IN EACH EYE FOR 3 WEEKS
     Dates: start: 20120303
  4. EXFORGE HCT [Suspect]
     Indication: HYPERTENSION
     Dosage: 0.5 TABLET (160/5/12.5 MG) DAILY
     Dates: start: 20111228

REACTIONS (10)
  - POOR QUALITY SLEEP [None]
  - CONSTIPATION [None]
  - SOMNOLENCE [None]
  - COLITIS [None]
  - HEADACHE [None]
  - HYPERTENSION [None]
  - WRONG TECHNIQUE IN DRUG USAGE PROCESS [None]
  - EATING DISORDER [None]
  - INSOMNIA [None]
  - FATIGUE [None]
